FAERS Safety Report 4725710-8 (Version None)
Quarter: 2005Q3

REPORT INFORMATION
  Report Type: 
  Country: None (occurrence: None)
  Receive Date: 20050722
  Receipt Date: 20050722
  Transmission Date: 20060218
  Serious: Yes (Life-Threatening)
  Sender: FDA-Public Use
  Company Number: None

PATIENT
  Age: 51 Year
  Sex: Male

DRUGS (1)
  1. ETOMIDATE [Suspect]

REACTIONS (4)
  - ANAESTHETIC COMPLICATION [None]
  - ANAESTHETIC COMPLICATION CARDIAC [None]
  - HYPOTENSION [None]
  - VENTRICULAR TACHYCARDIA [None]
